FAERS Safety Report 21527510 (Version 1)
Quarter: 2022Q4

REPORT INFORMATION
  Report Type: Spontaneous
  Country: CA (occurrence: CA)
  Receive Date: 20221031
  Receipt Date: 20221031
  Transmission Date: 20230112
  Serious: Yes (Other)
  Sender: FDA-Public Use
  Company Number: None

PATIENT
  Age: 22 Year
  Sex: Male

DRUGS (3)
  1. METHOTREXATE [Suspect]
     Active Substance: METHOTREXATE
     Indication: Crohn^s disease
     Dosage: 1 EVERY 1 WEEKS
     Route: 065
  2. FOLIC ACID [Concomitant]
     Active Substance: FOLIC ACID
  3. STELARA [Concomitant]
     Active Substance: USTEKINUMAB
     Indication: Crohn^s disease
     Route: 058

REACTIONS (9)
  - Arthralgia [Unknown]
  - Back pain [Unknown]
  - Drug effective for unapproved indication [Unknown]
  - Dyschezia [Unknown]
  - Faecal calprotectin increased [Unknown]
  - Musculoskeletal stiffness [Unknown]
  - Spondylitis [Unknown]
  - Spondyloarthropathy [Unknown]
  - Treatment failure [Unknown]
